FAERS Safety Report 21565062 (Version 1)
Quarter: 2022Q4

REPORT INFORMATION
  Report Type: Spontaneous
  Country: US (occurrence: US)
  Receive Date: 20221108
  Receipt Date: 20221108
  Transmission Date: 20230112
  Serious: No
  Sender: FDA-Public Use
  Company Number: US-ORGANON-O2210USA001228

PATIENT
  Sex: Female

DRUGS (1)
  1. ETHINYL ESTRADIOL\ETONOGESTREL [Suspect]
     Active Substance: ETHINYL ESTRADIOL\ETONOGESTREL
     Dosage: 1 RING (REPORTED AS 1 (3 RINGS))
     Route: 067

REACTIONS (4)
  - Product quality issue [Unknown]
  - Poor quality device used [Unknown]
  - Medical device site discomfort [Unknown]
  - No adverse event [Unknown]
